FAERS Safety Report 8384855-4 (Version None)
Quarter: 2012Q2

REPORT INFORMATION
  Report Type: 
  Country: None (occurrence: None)
  Receive Date: 20120524
  Receipt Date: 20120516
  Transmission Date: 20120825
  Serious: Yes (Other)
  Sender: FDA-Public Use
  Company Number: US-PFIZER INC-2008029147

PATIENT
  Sex: Male
  Weight: 81.6 kg

DRUGS (5)
  1. GLUCOTROL XL [Concomitant]
     Indication: DIABETES MELLITUS
  2. LIPITOR [Suspect]
     Dosage: 10 MG, 1X/DAY
     Route: 048
  3. LIPITOR [Suspect]
     Dosage: 10 MG, 2X/DAY
  4. INSULIN [Concomitant]
     Indication: DIABETES MELLITUS
  5. LIPITOR [Suspect]
     Indication: BLOOD CHOLESTEROL INCREASED
     Dosage: 20 MG, 1X/DAY
     Route: 048
     Dates: start: 19980101

REACTIONS (15)
  - HAEMORRHAGE SUBCUTANEOUS [None]
  - MUSCULAR WEAKNESS [None]
  - MUSCLE SPASMS [None]
  - RASH MACULAR [None]
  - VASCULAR GRAFT [None]
  - SKIN LESION [None]
  - RENAL DISORDER [None]
  - FATIGUE [None]
  - MUSCLE ATROPHY [None]
  - PAIN IN EXTREMITY [None]
  - MUSCULOSKELETAL DISORDER [None]
  - EPISTAXIS [None]
  - ANGIOPATHY [None]
  - PAIN [None]
  - ILL-DEFINED DISORDER [None]
